FAERS Safety Report 18917174 (Version 4)
Quarter: 2021Q3

REPORT INFORMATION
  Report Type: Spontaneous
  Country: US (occurrence: US)
  Receive Date: 20210219
  Receipt Date: 20210726
  Transmission Date: 20211014
  Serious: Yes (Hospitalization)
  Sender: FDA-Public Use
  Company Number: US-PFIZER INC-2021139032

PATIENT
  Age: 69 Year
  Sex: Female
  Weight: 51.25 kg

DRUGS (2)
  1. ESTRING [Suspect]
     Active Substance: ESTRADIOL
     Indication: ATROPHIC VULVOVAGINITIS
     Dosage: UNK (INSERT A RING EVERY 3 MONTHS)
     Route: 067
     Dates: start: 201903
  2. ESTRING [Suspect]
     Active Substance: ESTRADIOL
     Dosage: 2 MG

REACTIONS (2)
  - Vulvovaginal pain [Unknown]
  - Vulvovaginal discomfort [Unknown]
